FAERS Safety Report 7214156-9 (Version None)
Quarter: 2010Q4

REPORT INFORMATION
  Report Type: 
  Country: None (occurrence: None)
  Receive Date: 20101126
  Receipt Date: 20100215
  Transmission Date: 20110411
  Serious: Yes (Other)
  Sender: FDA-Public Use
  Company Number: WAES 1002USA02063

PATIENT
  Age: 47 Year
  Sex: Female

DRUGS (4)
  1. FOSAMAX [Suspect]
     Indication: OSTEOPOROSIS
  2. ACTONEL [Suspect]
  3. BONIVA [Suspect]
     Dates: start: 20090512
  4. MOBIC [Concomitant]

REACTIONS (4)
  - ARTHRALGIA [None]
  - DYSPEPSIA [None]
  - MUSCULOSKELETAL STIFFNESS [None]
  - PAIN [None]
